FAERS Safety Report 8323417-1 (Version None)
Quarter: 2012Q2

REPORT INFORMATION
  Report Type: 
  Country: None (occurrence: None)
  Receive Date: 20120430
  Receipt Date: 20120411
  Transmission Date: 20120825
  Serious: Yes (Hospitalization, Disabling, Other)
  Sender: FDA-Public Use
  Company Number: PHHO2008FR01216

PATIENT
  Sex: Female
  Weight: 50 kg

DRUGS (5)
  1. ACUPAN [Suspect]
  2. ILARIS [Suspect]
     Indication: MUCKLE-WELLS SYNDROME
     Dosage: EVERY 8 WEEKS.
     Route: 058
     Dates: start: 20070914, end: 20071210
  3. TANGANIL [Suspect]
  4. PLACEBO [Suspect]
     Indication: MUCKLE-WELLS SYNDROME
     Route: 058
  5. VOGALENE [Suspect]

REACTIONS (17)
  - MUCKLE-WELLS SYNDROME [None]
  - VERTIGO [None]
  - GLAUCOMA [None]
  - C-REACTIVE PROTEIN INCREASED [None]
  - IRIDECTOMY [None]
  - SCIATICA [None]
  - FATIGUE [None]
  - BACK PAIN [None]
  - HEADACHE [None]
  - VOMITING [None]
  - PYREXIA [None]
  - HYPERTONIA [None]
  - DEAFNESS [None]
  - ANGLE CLOSURE GLAUCOMA [None]
  - BLINDNESS [None]
  - NYSTAGMUS [None]
  - PAPILLITIS [None]
